FAERS Safety Report 25534019 (Version 1)
Quarter: 2025Q3

REPORT INFORMATION
  Report Type: Spontaneous
  Country: US (occurrence: None)
  Receive Date: 20250708
  Receipt Date: 20250708
  Transmission Date: 20251021
  Serious: Yes (Other)
  Sender: FDA-CTU
  Company Number: None

PATIENT
  Age: 68 Year
  Sex: Female
  Weight: 69.75 kg

DRUGS (3)
  1. ZEPBOUND [Suspect]
     Active Substance: TIRZEPATIDE
     Indication: Obstructive sleep apnoea syndrome
     Route: 058
     Dates: start: 20250523, end: 20250705
  2. LEXAPRO [Concomitant]
     Active Substance: ESCITALOPRAM OXALATE
  3. TRAZODONE [Concomitant]
     Active Substance: TRAZODONE HYDROCHLORIDE

REACTIONS (14)
  - Nausea [None]
  - Abdominal discomfort [None]
  - Abdominal pain lower [None]
  - Dizziness [None]
  - Loss of consciousness [None]
  - Fall [None]
  - Scratch [None]
  - Vomiting [None]
  - Injection site rash [None]
  - Injection site erythema [None]
  - Injection site warmth [None]
  - Injection site swelling [None]
  - Injection site hypersensitivity [None]
  - Frequent bowel movements [None]

NARRATIVE: CASE EVENT DATE: 20250525
